FAERS Safety Report 12541546 (Version 2)
Quarter: 2016Q3

REPORT INFORMATION
  Report Type: Spontaneous
  Country: US (occurrence: US)
  Receive Date: 20160708
  Receipt Date: 20160928
  Transmission Date: 20161109
  Serious: Yes (Other)
  Sender: FDA-Public Use
  Company Number: US-INCYTE CORPORATION-2016IN003932

PATIENT
  Sex: Male

DRUGS (2)
  1. JAKAFI [Suspect]
     Active Substance: RUXOLITINIB
     Dosage: 10 MG (TWO TABLETS EVERY MORNING AND TWO TABLETS EVERY EVENING)
     Route: 048
     Dates: start: 20150120
  2. JAKAFI [Suspect]
     Active Substance: RUXOLITINIB
     Dosage: 10 MG, BID
     Route: 048
     Dates: start: 20150120

REACTIONS (3)
  - Dry mouth [Unknown]
  - Epistaxis [Unknown]
  - Mouth haemorrhage [Unknown]
